FAERS Safety Report 8845942 (Version 1)
Quarter: 2012Q4

REPORT INFORMATION
  Report Type: 
  Country: GB (occurrence: GB)
  Receive Date: 20121017
  Receipt Date: 20121017
  Transmission Date: 20130627
  Serious: Yes (Other)
  Sender: FDA-Public Use
  Company Number: GB-ASTRAZENECA-2012SE75553

PATIENT
  Age: 29 Year
  Sex: Male
  Weight: 74 kg

DRUGS (3)
  1. SEROQUEL IR [Suspect]
     Indication: PERSONALITY DISORDER
     Route: 048
     Dates: start: 20111014, end: 20120928
  2. SEROQUEL IR [Suspect]
     Indication: PERSONALITY DISORDER
     Route: 048
  3. OLANZATINE [Concomitant]
     Dates: start: 201011, end: 201106

REACTIONS (3)
  - Pain [Unknown]
  - Spontaneous penile erection [Unknown]
  - Off label use [Unknown]
